FAERS Safety Report 23548825 (Version 5)
Quarter: 2024Q2

REPORT INFORMATION
  Report Type: Spontaneous
  Country: US (occurrence: US)
  Receive Date: 20240221
  Receipt Date: 20240617
  Transmission Date: 20240716
  Serious: Yes (Hospitalization, Other)
  Sender: FDA-Public Use
  Company Number: US-PFIZER INC-2021599322

PATIENT
  Age: 75 Year
  Sex: Male
  Weight: 88.45 kg

DRUGS (19)
  1. VYNDAMAX [Suspect]
     Active Substance: TAFAMIDIS
     Indication: Amyloidosis
     Dosage: 61 MG
     Dates: start: 202009
  2. VYNDAMAX [Suspect]
     Active Substance: TAFAMIDIS
     Indication: Acquired ATTR amyloidosis
     Dosage: 61 MG, 1X/DAY
  3. VYNDAMAX [Suspect]
     Active Substance: TAFAMIDIS
     Indication: Atrial fibrillation
  4. FUROSEMIDE [Concomitant]
     Active Substance: FUROSEMIDE
     Indication: Amyloidosis
     Dosage: 40 MG, 2X/DAY
  5. POTASSIUM CHLORIDE [Concomitant]
     Active Substance: POTASSIUM CHLORIDE
     Dosage: ONE IN THE MORNING, ONE AT NIGHT
  6. ASPIRIN [Concomitant]
     Active Substance: ASPIRIN
     Dosage: 81 MILLIGRAMS, ONE A DAY
  7. FERROUS SULFATE [Concomitant]
     Active Substance: FERROUS SULFATE
     Dosage: 325 MILLIGRAMS, TABLETS TWICE A DAY
  8. FAMOTIDINE [Concomitant]
     Active Substance: FAMOTIDINE
     Dosage: 40 MILLIGRAM, TABLET, ONE A DAY
  9. JARDIANCE [Concomitant]
     Active Substance: EMPAGLIFLOZIN
     Dosage: 10 MG, 1X/DAY
  10. CALCITRIOL [Concomitant]
     Active Substance: CALCITRIOL
     Dosage: 0.25 MCG, CAPSULE, ONE A DAY
  11. TAMSULOSIN [Concomitant]
     Active Substance: TAMSULOSIN
     Dosage: ONE IN MORNING, ONE AT NIGHT
  12. TORSEMIDE [Concomitant]
     Active Substance: TORSEMIDE
     Dosage: TWO IN THE MORNING, TWO AT NIGHT.
  13. PRAMIPEXOLE [Concomitant]
     Active Substance: PRAMIPEXOLE\PRAMIPEXOLE DIHYDROCHLORIDE
     Dosage: 1.5 MILLIGRAM, TABLET, ONE AT NIGHT BEDTIME
  14. ELIQUIS [Concomitant]
     Active Substance: APIXABAN
     Dosage: 5MG TWICE A DAY
  15. SPIRONOLACTONE [Concomitant]
     Active Substance: SPIRONOLACTONE
     Dosage: 25 MG, 1X/DAY
  16. ROSUVASTATIN [Concomitant]
     Active Substance: ROSUVASTATIN
     Dosage: 45 MG
  17. ROSUVASTATIN [Concomitant]
     Active Substance: ROSUVASTATIN
     Dosage: 40 MG
  18. ROSUVASTATIN [Concomitant]
     Active Substance: ROSUVASTATIN
     Dosage: 20 MG
  19. EZETIMIBE [Concomitant]
     Active Substance: EZETIMIBE
     Dosage: 10 MG

REACTIONS (5)
  - Influenza [Unknown]
  - Anaemia [Recovered/Resolved]
  - Haemoglobin decreased [Unknown]
  - Dyspnoea [Unknown]
  - Asthenia [Unknown]

NARRATIVE: CASE EVENT DATE: 20210101
